FAERS Safety Report 17455170 (Version 1)
Quarter: 2020Q1

REPORT INFORMATION
  Report Type: Spontaneous
  Country: US (occurrence: US)
  Receive Date: 20200225
  Receipt Date: 20200225
  Transmission Date: 20200409
  Serious: Yes (Life-Threatening, Hospitalization)
  Sender: FDA-Public Use
  Company Number: US-ROCHE-2553576

PATIENT
  Age: 62 Year
  Sex: Female

DRUGS (1)
  1. VISMODEGIB. [Suspect]
     Active Substance: VISMODEGIB
     Indication: BASAL CELL CARCINOMA
     Route: 048

REACTIONS (4)
  - Melaena [Recovered/Resolved]
  - Small intestinal haemorrhage [Recovered/Resolved]
  - Hepatotoxicity [Recovered/Resolved]
  - Haemobilia [Recovered/Resolved]
